FAERS Safety Report 7690316-8 (Version None)
Quarter: 2011Q3

REPORT INFORMATION
  Report Type: 
  Country: None (occurrence: None)
  Receive Date: 20110818
  Receipt Date: 20110811
  Transmission Date: 20111222
  Serious: Yes (Hospitalization)
  Sender: FDA-Public Use
  Company Number: DE-AMGEN-DEUSP2011026648

PATIENT
  Age: 39 Year
  Sex: Male
  Weight: 102 kg

DRUGS (3)
  1. PANTOZOL                           /01263202/ [Concomitant]
  2. NEUPOGEN [Suspect]
     Indication: APHERESIS
     Dosage: 480 A?G, UNK
     Route: 058
     Dates: start: 20101210
  3. METOPROLOL SUCCINATE [Concomitant]

REACTIONS (7)
  - PANCREATITIS [None]
  - LIPASE INCREASED [None]
  - ABDOMINAL PAIN UPPER [None]
  - HYPERTRIGLYCERIDAEMIA [None]
  - SPLENOMEGALY [None]
  - BLOOD AMYLASE INCREASED [None]
  - HEPATIC STEATOSIS [None]
